FAERS Safety Report 16629751 (Version 1)
Quarter: 2019Q3

REPORT INFORMATION
  Report Type: Report from Study
  Country: JP (occurrence: JP)
  Receive Date: 20190725
  Receipt Date: 20190725
  Transmission Date: 20191004
  Serious: Yes (Hospitalization)
  Sender: FDA-Public Use
  Company Number: JP-VIFOR (INTERNATIONAL) INC.-VIT-2019-07241

PATIENT
  Age: 62 Year
  Sex: Male
  Weight: 61.6 kg

DRUGS (25)
  1. BROTIZOLAM [Concomitant]
     Active Substance: BROTIZOLAM
     Indication: PROPHYLAXIS
     Route: 048
  2. EPOETIN ALFA BS [Concomitant]
     Active Substance: ERYTHROPOIETIN
     Route: 065
     Dates: start: 20161205, end: 20171027
  3. OXAROL [Concomitant]
     Active Substance: MAXACALCITOL
     Route: 042
     Dates: start: 20161125, end: 20170313
  4. BONVIVA [Concomitant]
     Active Substance: IBANDRONATE SODIUM
     Route: 042
     Dates: start: 20161123
  5. SENNOSIDE [Concomitant]
     Active Substance: SENNOSIDES
     Route: 048
  6. NEXIUM [Concomitant]
     Active Substance: ESOMEPRAZOLE MAGNESIUM
     Indication: GASTRITIS PROPHYLAXIS
     Route: 048
  7. BAYASPIRIN [Concomitant]
     Active Substance: ASPIRIN
     Route: 048
  8. PALUX [Concomitant]
     Active Substance: ALPROSTADIL
     Route: 042
  9. EPOETIN ALFA BS [Concomitant]
     Active Substance: ERYTHROPOIETIN
     Route: 065
     Dates: start: 20160930, end: 20161202
  10. VELPHORO [Suspect]
     Active Substance: FERRIC OXYHYDROXIDE
     Indication: HYPERPHOSPHATAEMIA
     Route: 048
     Dates: start: 20160817, end: 20160906
  11. VELPHORO [Suspect]
     Active Substance: FERRIC OXYHYDROXIDE
     Route: 048
     Dates: start: 20171103
  12. DILTIAZEM HYDROCHLORIDE. [Concomitant]
     Active Substance: DILTIAZEM HYDROCHLORIDE
     Route: 048
  13. ARGAMATE [Concomitant]
     Active Substance: CALCIUM POLYSTYRENE SULFONATE
     Route: 048
     Dates: end: 20171122
  14. ARGAMATE [Concomitant]
     Active Substance: CALCIUM POLYSTYRENE SULFONATE
     Route: 048
     Dates: start: 20171122
  15. L-CARNITINE FF [Concomitant]
     Route: 042
     Dates: start: 20170703
  16. OXAROL [Concomitant]
     Active Substance: MAXACALCITOL
     Route: 042
     Dates: start: 20171124, end: 20180531
  17. CARVEDILOL. [Concomitant]
     Active Substance: CARVEDILOL
     Route: 048
     Dates: start: 20170331
  18. ALESION [Concomitant]
     Active Substance: EPINASTINE HYDROCHLORIDE
     Indication: ALLERGY PROPHYLAXIS
     Dates: start: 20161017
  19. VELPHORO [Suspect]
     Active Substance: FERRIC OXYHYDROXIDE
     Route: 048
     Dates: start: 20160907, end: 20171103
  20. CARVEDILOL. [Concomitant]
     Active Substance: CARVEDILOL
     Route: 048
     Dates: start: 20170317
  21. EPOETIN ALFA BS [Concomitant]
     Active Substance: ERYTHROPOIETIN
     Route: 065
     Dates: start: 20171103
  22. OXAROL [Concomitant]
     Active Substance: MAXACALCITOL
     Route: 042
     Dates: start: 20180601
  23. CARVEDILOL. [Concomitant]
     Active Substance: CARVEDILOL
     Route: 048
     Dates: start: 20170317, end: 20170331
  24. NEUPRO [Concomitant]
     Active Substance: ROTIGOTINE
     Indication: RESTLESS LEGS SYNDROME
     Route: 062
     Dates: start: 20160727, end: 20170623
  25. ATELEC [Concomitant]
     Active Substance: CILNIDIPINE
     Route: 048
     Dates: start: 20161005, end: 20170317

REACTIONS (7)
  - Peripheral swelling [Recovering/Resolving]
  - Device loosening [Recovering/Resolving]
  - Rhinitis [Recovering/Resolving]
  - Shunt stenosis [Recovered/Resolved]
  - Nasopharyngitis [Recovered/Resolved]
  - Nasopharyngitis [Recovered/Resolved]
  - Cellulitis [Recovered/Resolved]

NARRATIVE: CASE EVENT DATE: 20161215
